FAERS Safety Report 5677305-X (Version None)
Quarter: 2008Q1

REPORT INFORMATION
  Report Type: 
  Country: None (occurrence: None)
  Receive Date: 20080318
  Receipt Date: 20080227
  Transmission Date: 20080703
  Serious: Yes (Hospitalization)
  Sender: FDA-Public Use
  Company Number: MEDI-0006528

PATIENT
  Age: 9 Month
  Sex: Male
  Weight: 3.75 kg

DRUGS (5)
  1. SYNAGIS [Suspect]
     Indication: PREMATURE BABY
     Dosage: 50 MG; 50 MG; 100 MG; 100 MG;
     Dates: start: 20070901, end: 20071112
  2. SYNAGIS [Suspect]
     Indication: PREMATURE BABY
     Dosage: 50 MG; 50 MG; 100 MG; 100 MG;
     Dates: start: 20070901
  3. SYNAGIS [Suspect]
     Indication: PREMATURE BABY
     Dosage: 50 MG; 50 MG; 100 MG; 100 MG;
     Dates: start: 20071011
  4. SYNAGIS [Suspect]
     Indication: PREMATURE BABY
     Dosage: 50 MG; 50 MG; 100 MG; 100 MG;
     Dates: start: 20080128
  5. PULMICORT RESPULE (BUDESONIDE) [Concomitant]

REACTIONS (3)
  - KLEBSIELLA INFECTION [None]
  - RESPIRATORY SYNCYTIAL VIRUS INFECTION [None]
  - SEPSIS [None]
